FAERS Safety Report 14858690 (Version 1)
Quarter: 2018Q2

REPORT INFORMATION
  Report Type: Spontaneous
  Country: US (occurrence: US)
  Receive Date: 20180508
  Receipt Date: 20180508
  Transmission Date: 20180711
  Serious: Yes (Other)
  Sender: FDA-Public Use
  Company Number: US-BAYER-2018-080730

PATIENT
  Age: 65 Year
  Sex: Female

DRUGS (5)
  1. OXYGEN. [Suspect]
     Active Substance: OXYGEN
     Indication: PRODUCT USED FOR UNKNOWN INDICATION
     Dosage: UNK
  2. AMBRISENTAN [Suspect]
     Active Substance: AMBRISENTAN
     Indication: PRODUCT USED FOR UNKNOWN INDICATION
     Dosage: 10 MG, QD
     Route: 065
     Dates: start: 20170209
  3. UPTRAVI [Suspect]
     Active Substance: SELEXIPAG
     Indication: PRODUCT USED FOR UNKNOWN INDICATION
     Dosage: 1000 ?G, BID
     Route: 065
  4. CLARITIN [Suspect]
     Active Substance: LORATADINE
     Indication: PRODUCT USED FOR UNKNOWN INDICATION
     Dosage: UNK
  5. UPTRAVI [Suspect]
     Active Substance: SELEXIPAG
     Indication: PRODUCT USED FOR UNKNOWN INDICATION
     Dosage: 800 ?G, BID
     Route: 065

REACTIONS (18)
  - Insomnia [Unknown]
  - Increased appetite [None]
  - Nasal congestion [None]
  - Dyspnoea [None]
  - Fibromyalgia [Not Recovered/Not Resolved]
  - Pain in extremity [Unknown]
  - Diarrhoea [Recovered/Resolved]
  - Nausea [None]
  - Scleroderma [Not Recovered/Not Resolved]
  - Jaw disorder [Not Recovered/Not Resolved]
  - Headache [None]
  - Gastrooesophageal reflux disease [Unknown]
  - Pain in extremity [Recovering/Resolving]
  - Dyspepsia [None]
  - Nasal dryness [None]
  - Pain [Not Recovered/Not Resolved]
  - Throat irritation [Unknown]
  - Pruritus [None]

NARRATIVE: CASE EVENT DATE: 20180206
